FAERS Safety Report 20086081 (Version 4)
Quarter: 2024Q1

REPORT INFORMATION
  Report Type: Spontaneous
  Country: US (occurrence: US)
  Receive Date: 20211118
  Receipt Date: 20240115
  Transmission Date: 20240410
  Serious: No
  Sender: FDA-Public Use
  Company Number: US-PFIZER INC-2021273730

PATIENT
  Age: 74 Year
  Sex: Female

DRUGS (1)
  1. XELJANZ XR [Suspect]
     Active Substance: TOFACITINIB CITRATE
     Dosage: 11 MG, 1X/DAY

REACTIONS (6)
  - Dizziness [Unknown]
  - Hepatic steatosis [Unknown]
  - Cough [Unknown]
  - Hypersensitivity [Unknown]
  - Product dose omission in error [Unknown]
  - Bradykinesia [Unknown]
